FAERS Safety Report 11334337 (Version 6)
Quarter: 2015Q4

REPORT INFORMATION
  Report Type: Spontaneous
  Country: US (occurrence: US)
  Receive Date: 20150803
  Receipt Date: 20151029
  Transmission Date: 20160304
  Serious: Yes (Hospitalization, Other)
  Sender: FDA-Public Use
  Company Number: US-JNJFOC-20150715953

PATIENT
  Age: 56 Year
  Sex: Female
  Weight: 85.28 kg

DRUGS (8)
  1. MOTRIN [Suspect]
     Active Substance: IBUPROFEN
     Indication: PAIN
     Dosage: EVERY 6 HOURS AS NEEDED, DAILY/A FEW TIMES WEEKLY (2 TO 3 TABS 400 MG - 600 MG).START: AROUND 2012
     Route: 048
     Dates: end: 20150310
  2. ADVIL [Suspect]
     Active Substance: IBUPROFEN
     Indication: ARTHRALGIA
     Dosage: EVERY 6 HOURS AS NEEDED, DAILY/A FEW TIMES WEEKLY (2 TO 3 TABS 400 MG - 600 MG).START: AROUND 2012
     Route: 048
     Dates: end: 20150310
  3. MOTRIN [Suspect]
     Active Substance: IBUPROFEN
     Indication: ARTHRALGIA
     Dosage: EVERY 6 HOURS AS NEEDED, DAILY/A FEW TIMES WEEKLY (2 TO 3 TABS 400 MG - 600 MG).START: AROUND 2012
     Route: 048
     Dates: end: 20150310
  4. MOTRIN [Suspect]
     Active Substance: IBUPROFEN
     Indication: ARTHRALGIA
     Dosage: EVERY 6 HOURS AS NEEDED, DAILY/A FEW TIMES WEEKLY (2 TO 3 TABS 400 MG - 600 MG).START: AROUND 2012
     Route: 048
     Dates: end: 20150310
  5. METOPROLOL [Concomitant]
     Active Substance: METOPROLOL
     Indication: HYPERTENSION
     Dosage: START YEAR 2010?
     Route: 048
     Dates: start: 2009
  6. ADVIL [Suspect]
     Active Substance: IBUPROFEN
     Indication: ARTHRALGIA
     Dosage: EVERY 6 HOURS AS NEEDED, DAILY/A FEW TIMES WEEKLY (2 TO 3 TABS 400 MG - 600 MG).START: AROUND 2012
     Route: 048
     Dates: end: 20150310
  7. ADVIL [Suspect]
     Active Substance: IBUPROFEN
     Indication: HEADACHE
     Dosage: EVERY 6 HOURS AS NEEDED, DAILY/A FEW TIMES WEEKLY (2 TO 3 TABS 400 MG - 600 MG).START: AROUND 2012
     Route: 048
     Dates: end: 20150310
  8. MOTRIN [Suspect]
     Active Substance: IBUPROFEN
     Indication: HEADACHE
     Dosage: EVERY 6 HOURS AS NEEDED, DAILY/A FEW TIMES WEEKLY (2 TO 3 TABS 400 MG - 600 MG).START: AROUND 2012
     Route: 048
     Dates: end: 20150310

REACTIONS (2)
  - Myocardial infarction [Recovered/Resolved]
  - Condition aggravated [Recovered/Resolved]

NARRATIVE: CASE EVENT DATE: 20150310
